FAERS Safety Report 13007916 (Version 2)
Quarter: 2016Q4

REPORT INFORMATION
  Report Type: Spontaneous
  Country: GR (occurrence: GR)
  Receive Date: 20161208
  Receipt Date: 20161230
  Transmission Date: 20170207
  Serious: Yes (Hospitalization, Other)
  Sender: FDA-Public Use
  Company Number: GR-ASTRAZENECA-2016SF28301

PATIENT
  Age: 65 Year
  Sex: Female
  Weight: 69 kg

DRUGS (5)
  1. IRON [Concomitant]
     Active Substance: IRON
     Dosage: 45 UG/DL
     Dates: start: 20161111
  2. TAGRISSO [Suspect]
     Active Substance: OSIMERTINIB
     Indication: NON-SMALL CELL LUNG CANCER
     Route: 048
     Dates: start: 20160810, end: 20161110
  3. TAGRISSO [Suspect]
     Active Substance: OSIMERTINIB
     Indication: NON-SMALL CELL LUNG CANCER
     Route: 048
     Dates: start: 20161121, end: 20161129
  4. TILDIEM [Concomitant]
     Active Substance: DILTIAZEM HYDROCHLORIDE
     Indication: HYPERTENSION
     Route: 048
     Dates: start: 20000615
  5. VITAMIN B12 [Concomitant]
     Active Substance: CYANOCOBALAMIN
     Dosage: 800 PG/DL
     Dates: start: 20161111

REACTIONS (9)
  - Neutropenia [Recovering/Resolving]
  - Bone lesion [Unknown]
  - Dysarthria [Unknown]
  - Thrombocytopenia [Recovered/Resolved]
  - Leukopenia [Recovering/Resolving]
  - Metastases to central nervous system [Unknown]
  - Intussusception [Recovered/Resolved]
  - Anaemia [Recovering/Resolving]
  - Malignant neoplasm progression [Unknown]

NARRATIVE: CASE EVENT DATE: 20160830
